FAERS Safety Report 5626623-X (Version None)
Quarter: 2008Q1

REPORT INFORMATION
  Report Type: 
  Country: None (occurrence: None)
  Receive Date: 20080212
  Receipt Date: 20080129
  Transmission Date: 20080703
  Serious: Yes (Hospitalization)
  Sender: FDA-Public Use
  Company Number: 2008US000253

PATIENT
  Age: 41 Year
  Sex: Female
  Weight: 86.2 kg

DRUGS (8)
  1. AMEVIVE [Suspect]
     Indication: PSORIASIS
     Dosage: 15 MG, WEEKLY, INTRAMUSCULAR
     Route: 030
     Dates: start: 20030701
  2. AMEVIVE [Suspect]
     Indication: PSORIASIS
     Dosage: 15 MG, WEEKLY, INTRAMUSCULAR
     Route: 030
     Dates: start: 20040505
  3. ENBREL [Concomitant]
  4. PREMARIN [Concomitant]
  5. FERROUS SULFATE TAB [Concomitant]
  6. FISH OIL (FISH OIL) [Concomitant]
  7. MULTIVITAMIN [Concomitant]
  8. LEVOTHYROXINE SODIUM [Concomitant]

REACTIONS (2)
  - HAEMOGLOBIN DECREASED [None]
  - MENORRHAGIA [None]
